FAERS Safety Report 11638000 (Version 1)
Quarter: 2015Q4

REPORT INFORMATION
  Report Type: Spontaneous
  Country: US (occurrence: US)
  Receive Date: 20151016
  Receipt Date: 20151016
  Transmission Date: 20160304
  Serious: No
  Sender: FDA-Public Use
  Company Number: US-INDIVIOR-RB-082057-2015

PATIENT
  Sex: Female

DRUGS (1)
  1. SUBOXONE [Suspect]
     Active Substance: BUPRENORPHINE HYDROCHLORIDE\NALOXONE HYDROCHLORIDE
     Indication: BULIMIA NERVOSA
     Dosage: UNK
     Route: 065

REACTIONS (3)
  - Therapeutic response unexpected [Recovered/Resolved]
  - Intentional overdose [Recovered/Resolved]
  - Off label use [Unknown]
